FAERS Safety Report 8965467 (Version 2)
Quarter: 2012Q4

REPORT INFORMATION
  Report Type: Report from Study
  Country: CA (occurrence: CA)
  Receive Date: 20121213
  Receipt Date: 20121227
  Transmission Date: 20130627
  Serious: Yes (Hospitalization)
  Sender: FDA-Public Use
  Company Number: CA-PFIZER INC-2012311721

PATIENT
  Age: 64 Year
  Sex: Male

DRUGS (24)
  1. NORVASC [Suspect]
     Dosage: 10 mg, 1x/day
     Dates: start: 20120318
  2. BLINDED THERAPY [Suspect]
     Indication: CARDIOVASCULAR EVENT PROPHYLAXIS
     Dosage: daily
     Route: 048
     Dates: start: 20120419
  3. LANTUS [Suspect]
     Dosage: 26 IU, 1x/day
     Dates: start: 20120904
  4. METOPROLOL [Concomitant]
     Dosage: 150 mg, UNK
     Dates: start: 20120318
  5. ONGLYZA [Concomitant]
     Dosage: 5 mg, UNK
     Dates: start: 20110209, end: 20120607
  6. METFORMIN HYDROCHLORIDE [Concomitant]
     Dosage: 850 mg, 3x/day
     Dates: start: 20110829, end: 20120523
  7. METFORMIN HYDROCHLORIDE [Concomitant]
     Dosage: 500 mg, 2x/day
     Dates: start: 20120524
  8. ACETAMINOPHEN [Concomitant]
     Dosage: 325 mg, as needed
     Dates: start: 20120209
  9. GLYBURIDE [Concomitant]
     Dosage: 2.5 mg, 1x/day
     Dates: start: 20110209, end: 20120524
  10. PLAVIX [Concomitant]
     Dosage: 75 mg, 1x/day
     Dates: start: 20120318
  11. CRESTOR [Concomitant]
     Dosage: 40 mg, 1x/day
     Dates: start: 20120318
  12. RIVASA [Concomitant]
     Dosage: 80 mg, 1x/day
     Dates: start: 20120318
  13. PERINDOPRIL [Concomitant]
     Dosage: 8 mg, 1x/day
     Dates: start: 20101230
  14. INDAPAMIDE [Concomitant]
     Dosage: 2.5 mg, 1x/day
     Dates: start: 20120412
  15. INDAPAMIDE [Concomitant]
     Dosage: 4 mg, 1x/day
     Dates: start: 20101230, end: 20120411
  16. NITRODUR II [Concomitant]
     Dosage: 04 mg, 1x/day
     Dates: start: 20120318, end: 20120528
  17. FUROSEMIDE [Concomitant]
     Dosage: 10 mg, 1x/day
     Dates: start: 20120316, end: 20120416
  18. FUROSEMIDE [Concomitant]
     Dosage: 40 mg, 2x/day
     Dates: start: 20120904
  19. FUROSEMIDE [Concomitant]
     Dosage: 20 mg, 2x/day
     Dates: start: 20120918
  20. DOVONEX [Concomitant]
     Dosage: 50 ug, as needed
     Dates: start: 201109
  21. DOVONEX [Concomitant]
     Dosage: 0.06 mg, as needed
     Dates: start: 20120904
  22. IMDUR [Concomitant]
     Dosage: 60 mg, 1x/day
     Dates: start: 20120529
  23. NPH INSULIN [Concomitant]
     Dosage: 12 IU, 1x/day
     Dates: start: 20120705, end: 20120903
  24. HUMALOG [Concomitant]
     Dosage: 6 IU, 3x/day
     Dates: start: 20120904

REACTIONS (1)
  - Generalised oedema [Recovering/Resolving]
